FAERS Safety Report 21184927 (Version 2)
Quarter: 2022Q3

REPORT INFORMATION
  Report Type: Spontaneous
  Country: PT (occurrence: PT)
  Receive Date: 20220808
  Receipt Date: 20220822
  Transmission Date: 20221026
  Serious: Yes (Life-Threatening, Hospitalization, Other)
  Sender: FDA-Public Use
  Company Number: PT-NOVARTISPH-NVSC2022PT177035

PATIENT
  Age: 73 Year
  Sex: Male

DRUGS (2)
  1. DABRAFENIB [Suspect]
     Active Substance: DABRAFENIB
     Indication: Lung neoplasm malignant
     Dosage: UNK
     Route: 065
     Dates: start: 202205, end: 20220730
  2. TRAMETINIB [Suspect]
     Active Substance: TRAMETINIB
     Indication: Lung neoplasm malignant
     Dosage: UNK
     Route: 065
     Dates: start: 202205, end: 20220730

REACTIONS (9)
  - Thrombocytopenia [Not Recovered/Not Resolved]
  - Activated partial thromboplastin time prolonged [Unknown]
  - Renal injury [Unknown]
  - Blood creatinine increased [Unknown]
  - Haematuria [Unknown]
  - Prothrombin time prolonged [Unknown]
  - Altered state of consciousness [Unknown]
  - Haemophagocytic lymphohistiocytosis [Unknown]
  - Pyrexia [Unknown]

NARRATIVE: CASE EVENT DATE: 20220730
